FAERS Safety Report 9921217 (Version 1)
Quarter: 2014Q1

REPORT INFORMATION
  Report Type: Spontaneous
  Country: US (occurrence: None)
  Receive Date: 20140221
  Receipt Date: 20140221
  Transmission Date: 20141002
  Serious: Yes (Hospitalization)
  Sender: FDA-Public Use
  Company Number: None

PATIENT
  Age: 76 Year
  Sex: Female
  Weight: 79.8 kg

DRUGS (12)
  1. XARELTO [Suspect]
     Indication: DEEP VEIN THROMBOSIS
     Route: 048
  2. CARVEDILOL(COREG) [Concomitant]
  3. DISP-180 TABLET [Concomitant]
  4. SODIUM (COLACE) [Concomitant]
  5. FUROSEMIDE(LASIX) [Concomitant]
  6. GINSENG [Concomitant]
  7. HM VITAMIN B-12 [Concomitant]
  8. LISINOPRIL(PRINIVIL, ZESTRIL) [Concomitant]
  9. LORAZEPAM(ATIVAN) [Concomitant]
  10. ODANSETRON(ZOFRAN ODT) [Concomitant]
  11. OXYCODONE-ACETAMINOPHEN(PERCOCET) [Concomitant]
  12. POLYETHYLENE GLYCOL(MIRALAX) [Concomitant]

REACTIONS (1)
  - Gastrointestinal haemorrhage [None]
